FAERS Safety Report 8600846-X (Version None)
Quarter: 2012Q3

REPORT INFORMATION
  Report Type: 
  Country: None (occurrence: None)
  Receive Date: 20120817
  Receipt Date: 20120807
  Transmission Date: 20120928
  Serious: Yes (Hospitalization)
  Sender: FDA-Public Use
  Company Number: US-ELI_LILLY_AND_COMPANY-US201104002026

PATIENT
  Sex: Female

DRUGS (2)
  1. FORTEO [Suspect]
     Dosage: 20 UG, QD
     Route: 058
     Dates: start: 20101026
  2. FORTEO [Suspect]
     Dosage: 20 UG, QD
     Route: 058
     Dates: start: 20100310, end: 20110101

REACTIONS (6)
  - RASH [None]
  - ARTHRALGIA [None]
  - TOOTH DISORDER [None]
  - PRURITUS [None]
  - PATELLA REPLACEMENT [None]
  - HIP ARTHROPLASTY [None]
